FAERS Safety Report 25157402 (Version 1)
Quarter: 2025Q2

REPORT INFORMATION
  Report Type: Spontaneous
  Country: CN (occurrence: CN)
  Receive Date: 20250403
  Receipt Date: 20250403
  Transmission Date: 20250716
  Serious: Yes (Hospitalization, Other)
  Sender: ELI LILLY AND CO
  Company Number: CN-ELI_LILLY_AND_COMPANY-CN202503022371

PATIENT
  Age: 48 Year
  Sex: Female
  Weight: 70 kg

DRUGS (3)
  1. TALTZ [Suspect]
     Active Substance: IXEKIZUMAB
     Indication: Psoriasis
     Route: 058
     Dates: start: 202410
  2. TALTZ [Suspect]
     Active Substance: IXEKIZUMAB
     Dosage: 80 MG, 2/M
     Route: 058
  3. TALTZ [Suspect]
     Active Substance: IXEKIZUMAB
     Dosage: 80 MG, MONTHLY (1/M)
     Route: 058

REACTIONS (16)
  - Fibrin D dimer increased [Unknown]
  - Hypersensitivity [Unknown]
  - Feeling cold [Unknown]
  - Psoriasis [Recovered/Resolved]
  - Heart rate increased [Unknown]
  - Thyroid mass [Recovered/Resolved]
  - Cardiac discomfort [Unknown]
  - Hypokinesia [Unknown]
  - Dysstasia [Unknown]
  - Muscular weakness [Unknown]
  - Dyspnoea [Unknown]
  - Presyncope [Recovered/Resolved]
  - Poisoning [Unknown]
  - Dizziness [Unknown]
  - Balance disorder [Unknown]
  - Nasopharyngitis [Recovered/Resolved]

NARRATIVE: CASE EVENT DATE: 20241027
